FAERS Safety Report 7633810-8 (Version None)
Quarter: 2011Q3

REPORT INFORMATION
  Report Type: 
  Country: None (occurrence: None)
  Receive Date: 20110725
  Receipt Date: 20110721
  Transmission Date: 20111222
  Serious: Yes (Hospitalization)
  Sender: FDA-Public Use
  Company Number: KR-MERCK-1107KOR00025

PATIENT
  Sex: Male

DRUGS (2)
  1. COZAAR [Suspect]
     Indication: HYPERTENSION
     Route: 048
     Dates: start: 20090101, end: 20100101
  2. HEPARIN [Concomitant]
     Route: 065

REACTIONS (8)
  - OEDEMA PERIPHERAL [None]
  - TRAUMATIC LUNG INJURY [None]
  - COUGH [None]
  - HERPES ZOSTER [None]
  - GAIT DISTURBANCE [None]
  - SWELLING FACE [None]
  - GENERAL PHYSICAL HEALTH DETERIORATION [None]
  - MUSCULOSKELETAL CHEST PAIN [None]
